FAERS Safety Report 6141135-5 (Version None)
Quarter: 2009Q1

REPORT INFORMATION
  Report Type: 
  Country: None (occurrence: None)
  Receive Date: 20090331
  Receipt Date: 20090320
  Transmission Date: 20090719
  Serious: Yes (Death, Hospitalization)
  Sender: FDA-Public Use
  Company Number: 2009-00930

PATIENT
  Age: 64 Year
  Sex: Male

DRUGS (7)
  1. VELCADE [Suspect]
     Indication: MULTIPLE MYELOMA
     Dosage: 2.2 MG, INTRAVENOUS
     Route: 042
     Dates: start: 20090217, end: 20090220
  2. ONTO328(CNT0328) VIAL [Suspect]
     Indication: MULTIPLE MYELOMA
     Dosage: 250 MG
     Dates: start: 20090217, end: 20090305
  3. PLACEBO() [Suspect]
     Indication: MULTIPLE MYELOMA
     Dosage: 250 MG, INTRAVENOUS
     Route: 042
     Dates: start: 20090217, end: 20090305
  4. PERINDOPRIL ERBUMINE [Concomitant]
  5. METOPROLOL TARTRATE [Concomitant]
  6. BUPRENOPHINE (BUPRENORPHINE) [Concomitant]
  7. PAMIDRONATE DISODIUM [Concomitant]

REACTIONS (4)
  - DILATATION VENTRICULAR [None]
  - PULMONARY HYPERTENSION [None]
  - PULMONARY OEDEMA [None]
  - RESPIRATORY DISTRESS [None]
